FAERS Safety Report 13477539 (Version 1)
Quarter: 2017Q2

REPORT INFORMATION
  Report Type: Spontaneous
  Country: US (occurrence: US)
  Receive Date: 20170425
  Receipt Date: 20170425
  Transmission Date: 20170830
  Serious: Yes (Other)
  Sender: FDA-Public Use
  Company Number: None

PATIENT
  Age: 66 Year
  Sex: Female
  Weight: 92.7 kg

DRUGS (1)
  1. METOLAZONE. [Suspect]
     Active Substance: METOLAZONE
     Route: 048
     Dates: start: 20160619, end: 20160622

REACTIONS (1)
  - Hyponatraemia [None]

NARRATIVE: CASE EVENT DATE: 20160619
